FAERS Safety Report 7436787-3 (Version None)
Quarter: 2011Q2

REPORT INFORMATION
  Report Type: 
  Country: None (occurrence: None)
  Receive Date: 20110426
  Receipt Date: 20110415
  Transmission Date: 20111010
  Serious: Yes (Hospitalization, Other)
  Sender: FDA-Public Use
  Company Number: JP-CELGENEUS-087-21880-11012560

PATIENT
  Sex: Male
  Weight: 54.2 kg

DRUGS (9)
  1. REVLIMID [Suspect]
     Dosage: 5 MILLIGRAM
     Route: 048
     Dates: start: 20100913, end: 20101003
  2. GURAK [Concomitant]
     Dosage: 45 MILLIGRAM
     Route: 048
  3. ASPIRIN [Concomitant]
     Indication: ANGINA PECTORIS
     Dosage: 100 MILLIGRAM
     Route: 048
  4. PRIMOBOLAN [Concomitant]
     Dosage: 10 MILLIGRAM
     Route: 048
  5. OMEPRAL [Concomitant]
     Dosage: 20 MILLIGRAM
     Route: 048
  6. DIGOSIN [Concomitant]
     Indication: ANGINA PECTORIS
     Dosage: .2 GRAM
     Route: 048
  7. ITOROL [Concomitant]
     Indication: ANGINA PECTORIS
     Dosage: 40 MILLIGRAM
     Route: 048
  8. EXJADE [Concomitant]
     Indication: IRON OVERLOAD
     Dosage: 1000 MILLIGRAM
     Route: 048
  9. CRAVIT [Concomitant]
     Indication: PROPHYLAXIS
     Dosage: 500 MILLIGRAM
     Route: 048
     Dates: start: 20100918, end: 20100924

REACTIONS (5)
  - BLOOD IMMUNOGLOBULIN E INCREASED [None]
  - EOSINOPHIL COUNT INCREASED [None]
  - DRUG ERUPTION [None]
  - THROMBOCYTOPENIA [None]
  - NEUTROPENIA [None]
